FAERS Safety Report 9641636 (Version 4)
Quarter: 2013Q4

REPORT INFORMATION
  Report Type: Spontaneous
  Country: JP (occurrence: JP)
  Receive Date: 20131023
  Receipt Date: 20131119
  Transmission Date: 20140711
  Serious: Yes (Other)
  Sender: FDA-Public Use
  Company Number: JP-GLAXOSMITHKLINE-B0933774A

PATIENT
  Age: 70 Year
  Sex: Female

DRUGS (2)
  1. TYKERB [Suspect]
     Indication: BREAST CANCER
     Route: 048
     Dates: start: 20130726
  2. XELODA [Concomitant]
     Route: 048
     Dates: start: 20130726

REACTIONS (5)
  - Haemorrhage subcutaneous [Recovering/Resolving]
  - Skin haemorrhage [Recovering/Resolving]
  - Periorbital haemorrhage [Recovering/Resolving]
  - Lacrimation increased [Recovering/Resolving]
  - Vision blurred [Recovering/Resolving]
